FAERS Safety Report 6436332-5 (Version None)
Quarter: 2009Q4

REPORT INFORMATION
  Report Type: 
  Country: None (occurrence: None)
  Receive Date: 20091111
  Receipt Date: 20091109
  Transmission Date: 20100525
  Serious: Yes (Hospitalization)
  Sender: FDA-Public Use
  Company Number: D0062829A

PATIENT
  Sex: Male

DRUGS (7)
  1. REQUIP [Suspect]
     Indication: PARKINSON'S DISEASE
     Dosage: 6MG PER DAY
     Route: 048
     Dates: start: 20090101
  2. LIORESAL [Suspect]
     Route: 065
  3. DOLORMIN [Suspect]
     Route: 065
  4. NACOM [Suspect]
     Route: 065
  5. PANTOPRAZOLE SODIUM [Suspect]
     Route: 065
  6. BOTULINUM TOXIN [Suspect]
     Route: 065
  7. SIFROL [Concomitant]
     Route: 065
     Dates: start: 20080901, end: 20090101

REACTIONS (3)
  - DRUG INEFFECTIVE [None]
  - GAIT DISTURBANCE [None]
  - PAIN [None]
